FAERS Safety Report 8771672 (Version 2)
Quarter: 2012Q4

REPORT INFORMATION
  Report Type: Report from Study
  Country: US (occurrence: US)
  Receive Date: 20120906
  Receipt Date: 20121110
  Transmission Date: 20130627
  Serious: Yes (Death)
  Sender: FDA-Public Use
  Company Number: US-MILLENNIUM PHARMACEUTICALS, INC.-2012-06221

PATIENT
  Age: 59 Year
  Sex: Male

DRUGS (29)
  1. VELCADE [Suspect]
     Indication: MULTIPLE MYELOMA
     Dosage: 1 mg/m2, Cyclic
     Dates: start: 20050601, end: 20120105
  2. VELCADE [Suspect]
     Dosage: UNK
     Dates: end: 20110819
  3. DEXAMETHASONE [Suspect]
     Indication: MULTIPLE MYELOMA
     Dosage: 40 mg, Cyclic
     Route: 048
     Dates: start: 20050604
  4. DEXAMETHASONE [Suspect]
     Dosage: 20 mg, Cyclic
     Route: 048
     Dates: end: 20070105
  5. THALIDOMIDE [Suspect]
     Indication: MULTIPLE MYELOMA
     Dosage: 200 mg, Cyclic
     Dates: start: 20050604
  6. THALIDOMIDE [Suspect]
     Dosage: 50 mg, Cyclic
     Dates: end: 20070118
  7. THALIDOMIDE [Suspect]
     Dosage: UNK
     Dates: end: 20110914
  8. CISPLATIN [Suspect]
     Indication: MULTIPLE MYELOMA
     Dosage: 10 mg/m2, Cyclic
     Dates: start: 20050604
  9. CISPLATIN [Suspect]
     Dosage: 7.5 mg/m2, Cyclic
     Dates: end: 20051230
  10. ADRIAMYCIN [Suspect]
     Indication: MULTIPLE MYELOMA
     Dosage: 10 mg/m2, Cyclic
     Dates: start: 20050604
  11. ADRIAMYCIN [Suspect]
     Dosage: 7.5 mg/m2, Cyclic
     Dates: end: 20051230
  12. CYCLOPHOSPHAMIDE [Suspect]
     Indication: MULTIPLE MYELOMA
     Dosage: 400 mg/m2, Cyclic
     Dates: start: 20050604
  13. CYCLOPHOSPHAMIDE [Suspect]
     Dosage: 300 mg/m2, Cyclic
     Dates: end: 20051230
  14. ETOPOSIDE [Suspect]
     Indication: MULTIPLE MYELOMA
     Dosage: 40 mg/m2, Cyclic
     Dates: start: 20050604
  15. ETOPOSIDE [Suspect]
     Dosage: 30 mg/m2, Cyclic
     Dates: end: 20051230
  16. MELPHALAN [Suspect]
     Indication: MULTIPLE MYELOMA
     Dosage: 200 mg/m2, Cyclic
     Dates: start: 20050723, end: 20050921
  17. LOVENOX [Concomitant]
     Indication: PRODUCT USED FOR UNKNOWN INDICATION
     Dosage: 40 mg, bid
     Route: 058
  18. AREDIA [Concomitant]
     Indication: PRODUCT USED FOR UNKNOWN INDICATION
     Dosage: UNK
     Route: 042
  19. ACYCLOVIR                          /00587301/ [Concomitant]
     Indication: PRODUCT USED FOR UNKNOWN INDICATION
     Dosage: 400 mg, qd
     Route: 048
  20. ZANTAC                             /00550802/ [Concomitant]
     Indication: PRODUCT USED FOR UNKNOWN INDICATION
     Dosage: 150 mg, bid
     Route: 048
  21. SENNA                              /00142201/ [Concomitant]
     Indication: PRODUCT USED FOR UNKNOWN INDICATION
     Route: 048
  22. IBUPROFEN [Concomitant]
     Indication: PRODUCT USED FOR UNKNOWN INDICATION
     Dosage: 200 mg, prn
     Route: 048
  23. ASPIRIN [Concomitant]
     Indication: PRODUCT USED FOR UNKNOWN INDICATION
     Dosage: 162.5 mg, Cyclic
     Route: 048
  24. AMBIEN [Concomitant]
     Indication: PRODUCT USED FOR UNKNOWN INDICATION
     Dosage: 10 mg, prn
     Route: 048
  25. REVLIMID [Concomitant]
     Indication: PRODUCT USED FOR UNKNOWN INDICATION
     Dosage: 15 mg, Cyclic
     Route: 048
     Dates: start: 20070914, end: 20110819
  26. COUMADIN                           /00014802/ [Concomitant]
     Indication: PRODUCT USED FOR UNKNOWN INDICATION
     Dosage: 5 mg, UNK
     Route: 048
  27. LITHIUM [Concomitant]
     Indication: PRODUCT USED FOR UNKNOWN INDICATION
     Dosage: 300 mg, qd
     Route: 048
  28. CALCARB                            /00108001/ [Concomitant]
     Indication: PRODUCT USED FOR UNKNOWN INDICATION
     Dosage: 600 mg, qd
     Route: 048
  29. COLACE [Concomitant]
     Indication: PRODUCT USED FOR UNKNOWN INDICATION
     Dosage: 100 mg, bid
     Route: 048

REACTIONS (2)
  - Acute myeloid leukaemia [Fatal]
  - Second primary malignancy [Fatal]
